FAERS Safety Report 13960679 (Version 2)
Quarter: 2017Q3

REPORT INFORMATION
  Report Type: Spontaneous
  Country: JP (occurrence: JP)
  Receive Date: 20170912
  Receipt Date: 20170919
  Transmission Date: 20171128
  Serious: Yes (Other)
  Sender: FDA-Public Use
  Company Number: JP-PFIZER INC-2017359697

PATIENT
  Age: 76 Year
  Sex: Male
  Weight: 80 kg

DRUGS (15)
  1. ETIZOLAM [Suspect]
     Active Substance: ETIZOLAM
     Dosage: 0.5 MG, 2X/DAY
  2. CIBENZOLINE [Concomitant]
     Active Substance: CIFENLINE
     Dosage: 50 MG, 2X/DAY
  3. OLMETEC [Concomitant]
     Active Substance: OLMESARTAN MEDOXOMIL
     Dosage: 20 MG, 1X/DAY
  4. ATORVASTATIN [Concomitant]
     Active Substance: ATORVASTATIN
     Dosage: 5 MG, 1X/DAY
  5. AMLODIPINE [Concomitant]
     Active Substance: AMLODIPINE BESYLATE
     Dosage: 5 MG, 1X/DAY
  6. TOVIAZ [Suspect]
     Active Substance: FESOTERODINE FUMARATE
     Indication: HYPERTONIC BLADDER
     Dosage: 4 MG, 2X/DAY
     Route: 048
  7. CLOPIDOGREL [Concomitant]
     Active Substance: CLOPIDOGREL BISULFATE
     Dosage: 75 MG, 1X/DAY
  8. ANPLAG [Concomitant]
     Active Substance: SARPOGRELATE
     Dosage: 50 MG, 6X/DAY
  9. HARNAL [Suspect]
     Active Substance: TAMSULOSIN HYDROCHLORIDE
     Dosage: 2 MG, 1X/DAY
     Dates: start: 20170808
  10. RINLAXER [Suspect]
     Active Substance: CHLORPHENESIN CARBAMATE
     Dosage: 250 MG, 2X/DAY
  11. DORNER [Concomitant]
     Active Substance: BERAPROST SODIUM
     Dosage: 20 MG, 6X/DAY
  12. CELECOX [Concomitant]
     Active Substance: CELECOXIB
     Dosage: 100 MG, 2X/DAY
  13. DONEPEZIL HCL [Suspect]
     Active Substance: DONEPEZIL HYDROCHLORIDE
     Dosage: 5 MG, 1X/DAY
     Route: 048
  14. DANTRIUM [Suspect]
     Active Substance: DANTROLENE SODIUM
     Dosage: UNK UNK, AS NEEDED
  15. BISOPROLOL FUMARATE. [Concomitant]
     Active Substance: BISOPROLOL FUMARATE
     Dosage: 2.5 MG, 1X/DAY

REACTIONS (4)
  - Dizziness [Unknown]
  - Palpitations [Unknown]
  - Dyspnoea [Unknown]
  - Product use issue [Unknown]

NARRATIVE: CASE EVENT DATE: 20170811
